FAERS Safety Report 6392956-5 (Version None)
Quarter: 2009Q4

REPORT INFORMATION
  Report Type: 
  Country: None (occurrence: None)
  Receive Date: 20091008
  Receipt Date: 20070925
  Transmission Date: 20100525
  Serious: Yes (Other)
  Sender: FDA-Public Use
  Company Number: US-ASTRAZENECA-2006UW20478

PATIENT
  Age: 15671 Day
  Sex: Male
  Weight: 94.3 kg

DRUGS (22)
  1. SEROQUEL [Suspect]
     Indication: SLEEP DISORDER
     Route: 048
     Dates: start: 20020725, end: 20041001
  2. SEROQUEL [Suspect]
     Indication: ANXIETY
     Route: 048
     Dates: start: 20020725, end: 20041001
  3. SEROQUEL [Suspect]
     Dosage: 50 MG-300 MG AT NIGHT
     Route: 048
     Dates: start: 20020725
  4. SEROQUEL [Suspect]
     Dosage: 50 MG-300 MG AT NIGHT
     Route: 048
     Dates: start: 20020725
  5. SEROQUEL [Suspect]
     Route: 048
     Dates: start: 20041001, end: 20041001
  6. SEROQUEL [Suspect]
     Route: 048
     Dates: start: 20041001, end: 20041001
  7. RISPERDAL [Concomitant]
     Dates: start: 20020909
  8. RISPERDAL [Concomitant]
     Dates: start: 20021022
  9. ZYPREXA [Concomitant]
     Dates: start: 20021117
  10. ZOLOFT [Concomitant]
     Dates: start: 19970101
  11. WELLBUTRIN [Concomitant]
     Dosage: 75 MG, 150 MG
     Dates: start: 20021006
  12. NAVANE [Concomitant]
     Dates: start: 20020922
  13. CELEXA [Concomitant]
     Route: 048
     Dates: start: 20020425
  14. NORVASC [Concomitant]
     Dosage: 7.5 MG- 10 MG DAILY
     Route: 048
     Dates: start: 20021026
  15. PREVACID [Concomitant]
     Indication: HYPERCHLORHYDRIA
     Route: 048
     Dates: start: 20041011
  16. DEPAKOTE [Concomitant]
     Dosage: 500 MG-1000 MG AT NIGHT
     Dates: start: 20041011
  17. LOTREL [Concomitant]
     Indication: BLOOD PRESSURE
     Dosage: 5/10 MG DAILY
     Route: 048
     Dates: start: 20011026
  18. SYNTHROID [Concomitant]
     Indication: HYPOTHYROIDISM
     Dosage: 0.15 MG-0.2 MG DAILY
     Route: 048
     Dates: start: 19931101
  19. ATIVAN [Concomitant]
     Dosage: 1 MG 6 HRLY PRN
     Route: 030
     Dates: start: 20020917
  20. DESYREL [Concomitant]
     Dosage: 50 MG AT NIGHT PRN
     Route: 048
     Dates: start: 20020919
  21. KLONOPIN [Concomitant]
     Dosage: 1/2 BID AND 1/2 QHS
     Dates: start: 19971230
  22. VALIUM [Concomitant]
     Dosage: 5 MG-10 MG AT NIGHT
     Dates: start: 19991224

REACTIONS (5)
  - BLOOD CHOLESTEROL INCREASED [None]
  - DIABETES MELLITUS [None]
  - DIABETIC RETINOPATHY [None]
  - HYPERGLYCAEMIA [None]
  - RENAL FAILURE [None]
